FAERS Safety Report 19427307 (Version 1)
Quarter: 2021Q2

REPORT INFORMATION
  Report Type: Spontaneous
  Country: US (occurrence: US)
  Receive Date: 20210616
  Receipt Date: 20210616
  Transmission Date: 20210717
  Serious: No
  Sender: FDA-Public Use
  Company Number: None

PATIENT
  Age: 70 Year
  Sex: Female
  Weight: 75.6 kg

DRUGS (2)
  1. CEFAZOLIN [Concomitant]
     Active Substance: CEFAZOLIN
     Dates: start: 20210604, end: 20210604
  2. HEPARIN [Suspect]
     Active Substance: HEPARIN SODIUM
     Indication: INTRAOPERATIVE CARE
     Dosage: OTHER FREQUENCY:TWICE;?
     Route: 040
     Dates: start: 20210604, end: 20210604

REACTIONS (1)
  - Drug ineffective [None]

NARRATIVE: CASE EVENT DATE: 20210604
